FAERS Safety Report 14601947 (Version 1)
Quarter: 2018Q1

REPORT INFORMATION
  Report Type: Spontaneous
  Country: IN (occurrence: IN)
  Receive Date: 20180306
  Receipt Date: 20180306
  Transmission Date: 20180509
  Serious: Yes (Other)
  Sender: FDA-Public Use
  Company Number: IN-VISTAPHARM, INC.-VER201802-000451

PATIENT
  Age: 21 Year
  Sex: Male

DRUGS (1)
  1. PHENYTOIN. [Suspect]
     Active Substance: PHENYTOIN
     Indication: EPILEPSY

REACTIONS (3)
  - Ataxia [Unknown]
  - Drug withdrawal syndrome [Recovered/Resolved]
  - Central nervous system lesion [Recovered/Resolved]
